FAERS Safety Report 23343148 (Version 1)
Quarter: 2023Q4

REPORT INFORMATION
  Report Type: Spontaneous
  Country: US (occurrence: US)
  Receive Date: 20231227
  Receipt Date: 20231227
  Transmission Date: 20240110
  Serious: No
  Sender: FDA-Public Use
  Company Number: US-009507513-2312USA005527

PATIENT
  Age: 26 Year
  Sex: Female

DRUGS (6)
  1. NOXAFIL [Suspect]
     Active Substance: POSACONAZOLE
     Indication: Antifungal prophylaxis
     Dosage: 400 MILLIGRAM, QD (4 YEARS)
     Route: 048
  2. NOXAFIL [Suspect]
     Active Substance: POSACONAZOLE
     Dosage: 771 NANOGRAM PER MILLIGRAM
  3. NOXAFIL [Suspect]
     Active Substance: POSACONAZOLE
     Dosage: 300 MILLIGRAM POST-PYLORIC
  4. NOXAFIL [Suspect]
     Active Substance: POSACONAZOLE
     Dosage: {100 NANOGRAM PER MILLIGRAM (5 DAYS)
  5. NOXAFIL [Suspect]
     Active Substance: POSACONAZOLE
     Dosage: 300 MILLIGRAM, QD
     Route: 042
  6. NOXAFIL [Suspect]
     Active Substance: POSACONAZOLE
     Dosage: 163 NANOGRAM PER MILLIGRAM (1 DAY)
     Route: 042

REACTIONS (4)
  - Drug level below therapeutic [Unknown]
  - Wrong technique in product usage process [Unknown]
  - Incorrect dose administered [Unknown]
  - Incorrect route of product administration [Unknown]
